FAERS Safety Report 8541577 (Version 2)
Quarter: 2013Q2

REPORT INFORMATION
  Report Type: Spontaneous
  Country: US (occurrence: None)
  Receive Date: 20120315
  Receipt Date: 20120426
  Transmission Date: 20140414
  Serious: Yes (Other)
  Sender: FDA-Public Use
  Company Number: PHHY2011US46990

PATIENT
  Age: 34 Year
  Sex: Female

DRUGS (21)
  1. GILENYA [Suspect]
     Indication: RELAPSING-REMITTING MULTIPLE SCLEROSIS
     Dosage: 0.5 MG, QD, ORAL
     Route: 048
     Dates: start: 20110505, end: 20110527
  2. GABAPENTIN [Concomitant]
  3. ACTHAR GEL (CORTICOTROPHIN INJECTION, REPOSITORY) [Concomitant]
  4. VICODIN [Concomitant]
  5. XANAX [Concomitant]
  6. PRISTIQ EXTENDED RELEASE [Concomitant]
  7. FIORICET [Concomitant]
  8. IBUPROFEN [Concomitant]
  9. VITAMIN D (ERGOCALCIFEROL) [Concomitant]
  10. ASA (ACETYLSALICYLIC ACID) [Concomitant]
  11. ROPINIROLE [Concomitant]
  12. VITAMIN C [Concomitant]
  13. VITAMIN B1 [Concomitant]
  14. CALCIUM [Concomitant]
  15. MAGNESIUM [Concomitant]
  16. FLAXSEED OIL (LINUM USITATISSIMUM SEED OIL) [Concomitant]
  17. COD-LIVER OIL [Concomitant]
  18. EVENING PRIMROSE OIL (GAMOLENIC ACID) [Concomitant]
  19. OMEPRAZOLE [Concomitant]
  20. CORTICOSTEROIDS (NO INGREDIENT/SUBSTANCES) [Concomitant]
  21. ANTICHOLINERGICS (NO INGREDIENT/SUBSTANCES) [Concomitant]

REACTIONS (21)
  - MULTIPLE SCLEROSIS RELAPSE [None]
  - NAUSEA [None]
  - DIARRHOEA [None]
  - HEADACHE [None]
  - GAIT DISTURBANCE [None]
  - BLINDNESS [None]
  - DIPLOPIA [None]
  - FATIGUE [None]
  - EYELID PTOSIS [None]
  - EYE DISORDER [None]
  - TUNNEL VISION [None]
  - PAIN IN JAW [None]
  - VISUAL FIELD DEFECT [None]
  - VISUAL ACUITY REDUCED [None]
  - VISUAL IMPAIRMENT [None]
  - COLOUR BLINDNESS ACQUIRED [None]
  - DIZZINESS [None]
  - FACIAL PAIN [None]
  - VISION BLURRED [None]
  - Hypertension [None]
  - White blood cell count decreased [None]
